FAERS Safety Report 5053647-6 (Version None)
Quarter: 2006Q2

REPORT INFORMATION
  Report Type: 
  Country: None (occurrence: None)
  Receive Date: 20060614
  Receipt Date: 20060404
  Transmission Date: 20061013
  Serious: Yes (Other)
  Sender: FDA-Public Use
  Company Number: 443449

PATIENT
  Sex: Female

DRUGS (8)
  1. BONIVA [Suspect]
     Indication: OSTEOPOROSIS
     Dosage: 1 PER MONTH ORAL
     Route: 048
     Dates: start: 20060201
  2. TAZTIA XR (DILTIAZEM) [Concomitant]
  3. PREMARIN [Concomitant]
  4. TRAMADOL HCL [Concomitant]
  5. CORAL CALCIUM SUPREME (CALCIUM/FOLIC ACID/MINERALS NOS/VITAMINS NOS) [Concomitant]
  6. MAGNESIUM SULFATE [Concomitant]
  7. GLUCOSAMINE (GLUCOSAMINE) [Concomitant]
  8. LUMIGAN [Concomitant]

REACTIONS (2)
  - MUSCULOSKELETAL STIFFNESS [None]
  - MYALGIA [None]
